FAERS Safety Report 24113322 (Version 1)
Quarter: 2024Q3

REPORT INFORMATION
  Report Type: Spontaneous
  Country: US (occurrence: US)
  Receive Date: 20240719
  Receipt Date: 20240719
  Transmission Date: 20241017
  Serious: Yes (Other)
  Sender: QUAGEN PHARMACEUTICALS
  Company Number: US-QUAGEN-2024QUALIT00220

PATIENT
  Age: 76 Year
  Sex: Female

DRUGS (3)
  1. TRIAMCINOLONE ACETONIDE [Suspect]
     Active Substance: TRIAMCINOLONE ACETONIDE
     Indication: Cystoid macular oedema
  2. DIFLUPREDNATE [Concomitant]
     Active Substance: DIFLUPREDNATE
     Indication: Product used for unknown indication
     Route: 065
  3. Dorzolamide/Timolol (Dorzolamide Hydrochloride;Timolol Maleate) [Concomitant]
     Indication: Product used for unknown indication
     Route: 065

REACTIONS (3)
  - Glaucoma [Recovering/Resolving]
  - Recession of chamber angle of eye [Recovering/Resolving]
  - Product use in unapproved indication [Unknown]
